FAERS Safety Report 13272012 (Version 1)
Quarter: 2017Q1

REPORT INFORMATION
  Report Type: Spontaneous
  Country: GB (occurrence: GB)
  Receive Date: 20170227
  Receipt Date: 20170227
  Transmission Date: 20170428
  Serious: Yes (Other)
  Sender: FDA-Public Use
  Company Number: GB-ROCHE-510490

PATIENT
  Age: 55 Year
  Sex: Female

DRUGS (3)
  1. ORLISTAT [Suspect]
     Active Substance: ORLISTAT
     Indication: OBESITY
     Route: 065
  2. INSULIN [Concomitant]
     Active Substance: INSULIN NOS
  3. WARFARIN [Concomitant]
     Active Substance: WARFARIN

REACTIONS (2)
  - Nephrolithiasis [Unknown]
  - Diabetic nephropathy [Unknown]
